FAERS Safety Report 8263353 (Version 31)
Quarter: 2015Q2

REPORT INFORMATION
  Report Type: Report from Study
  Country: CA (occurrence: CA)
  Receive Date: 20111125
  Receipt Date: 20150619
  Transmission Date: 20150821
  Serious: Yes (Hospitalization, Other)
  Sender: FDA-Public Use
  Company Number: PHHY2011CA68501

PATIENT
  Age: 68 Year
  Sex: Male

DRUGS (4)
  1. SANDOSTATIN [Suspect]
     Active Substance: OCTREOTIDE ACETATE
     Indication: NEUROENDOCRINE TUMOUR
     Dosage: ONCE/SINGLE (TEST DOSE)
     Route: 058
     Dates: start: 20110620, end: 20110620
  2. METFORMIN [Concomitant]
     Active Substance: METFORMIN HYDROCHLORIDE
     Indication: DIABETES MELLITUS
     Route: 065
  3. SANDOSTATIN LAR DEPOT [Suspect]
     Active Substance: OCTREOTIDE ACETATE
     Indication: NEUROENDOCRINE TUMOUR
     Dosage: 30 MG, EVERY 4 WEEKS
     Route: 030
     Dates: start: 20110628
  4. NILSTAT [Concomitant]
     Active Substance: NYSTATIN
     Indication: PRODUCT USED FOR UNKNOWN INDICATION
     Route: 065

REACTIONS (57)
  - Diabetes mellitus [Unknown]
  - Penile pain [Unknown]
  - Gastrointestinal infection [Unknown]
  - Lung disorder [Unknown]
  - Body temperature decreased [Unknown]
  - Abdominal pain lower [Unknown]
  - Vomiting [Unknown]
  - Dizziness [Unknown]
  - Lymphadenopathy [Unknown]
  - Arthralgia [Unknown]
  - Skin fragility [Unknown]
  - Blood pressure increased [Unknown]
  - Emotional distress [Unknown]
  - Syncope [Unknown]
  - Bowel movement irregularity [Unknown]
  - Rotator cuff syndrome [Unknown]
  - Cellulitis [Unknown]
  - Secretion discharge [Unknown]
  - Gait disturbance [Not Recovered/Not Resolved]
  - Erythema [Not Recovered/Not Resolved]
  - Fungal infection [Unknown]
  - Peripheral coldness [Unknown]
  - Incision site pain [Unknown]
  - Nausea [Unknown]
  - Injection site pain [Unknown]
  - Joint swelling [Unknown]
  - Movement disorder [Unknown]
  - Bone neoplasm [Unknown]
  - Blood pressure diastolic decreased [Unknown]
  - Localised infection [Unknown]
  - Anxiety [Unknown]
  - Feeling abnormal [Unknown]
  - Feeling hot [Unknown]
  - Diarrhoea [Unknown]
  - Oedema peripheral [Unknown]
  - Blood glucose increased [Not Recovered/Not Resolved]
  - Malignant neoplasm progression [Unknown]
  - Cataract [Unknown]
  - Penis disorder [Unknown]
  - Loss of consciousness [Unknown]
  - Hepatic cancer [Unknown]
  - Mood altered [Unknown]
  - Anger [Unknown]
  - Malaise [Unknown]
  - Second primary malignancy [Unknown]
  - Fall [Unknown]
  - Pain in extremity [Unknown]
  - Peripheral swelling [Unknown]
  - Limb injury [Not Recovered/Not Resolved]
  - Mood swings [Unknown]
  - Dry mouth [Unknown]
  - Full blood count decreased [Unknown]
  - Blood test abnormal [Unknown]
  - Fatigue [Unknown]
  - Asthenia [Unknown]
  - Injection site discomfort [Unknown]
  - Abdominal pain upper [Unknown]

NARRATIVE: CASE EVENT DATE: 20130314
